FAERS Safety Report 6121506-3 (Version None)
Quarter: 2009Q1

REPORT INFORMATION
  Report Type: 
  Country: None (occurrence: None)
  Receive Date: 20090316
  Receipt Date: 20090316
  Transmission Date: 20090719
  Serious: No
  Sender: FDA-Public Use
  Company Number: None

PATIENT
  Sex: Female
  Weight: 44.4525 kg

DRUGS (1)
  1. CALCITONIN SALMON [Suspect]
     Indication: OSTEOPOROSIS
     Dosage: 1 SPRAY ONCE A DAY NASAL
     Route: 045
     Dates: start: 20090306, end: 20090315

REACTIONS (1)
  - PRODUCT QUALITY ISSUE [None]
